FAERS Safety Report 7058445-X (Version None)
Quarter: 2010Q4

REPORT INFORMATION
  Report Type: 
  Country: None (occurrence: None)
  Receive Date: 20101022
  Receipt Date: 20101013
  Transmission Date: 20110411
  Serious: No
  Sender: FDA-Public Use
  Company Number: US-PFIZER INC-2010130834

PATIENT
  Sex: Female
  Weight: 78.912 kg

DRUGS (4)
  1. NEURONTIN [Suspect]
     Indication: HEADACHE
     Dosage: UNK
     Dates: start: 20100901
  2. MEDROL [Concomitant]
     Dosage: UNK
  3. NAPROXEN [Concomitant]
     Dosage: UNK
  4. MAGNESIUM OXIDE [Concomitant]
     Dosage: UNK

REACTIONS (1)
  - DRUG INEFFECTIVE FOR UNAPPROVED INDICATION [None]
